FAERS Safety Report 25691470 (Version 1)
Quarter: 2025Q3

REPORT INFORMATION
  Report Type: Spontaneous
  Country: CN (occurrence: CN)
  Receive Date: 20250818
  Receipt Date: 20250818
  Transmission Date: 20251021
  Serious: Yes (Hospitalization, Other)
  Sender: HISUN PHARMACEUTICALS USA INC
  Company Number: CN-Hisun Pharmaceuticals USA Inc.-000603

PATIENT
  Age: 6 Month
  Sex: Male

DRUGS (4)
  1. DACTINOMYCIN [Suspect]
     Active Substance: DACTINOMYCIN
     Indication: Nephroblastoma
     Dosage: ONCE WEEKLY IN THE SECOND WEEK
     Dates: start: 202311
  2. VINCRISTINE [Suspect]
     Active Substance: VINCRISTINE
     Indication: Nephroblastoma
     Dosage: ONCE WEEKLY IN THE FIRST WEEK
     Dates: start: 202311
  3. VINCRISTINE [Suspect]
     Active Substance: VINCRISTINE
     Indication: Nephroblastoma
     Dosage: ONCE WEEKLY IN THE SECOND WEEK
     Dates: start: 202311
  4. VINCRISTINE [Suspect]
     Active Substance: VINCRISTINE
     Indication: Nephroblastoma
     Dosage: ONCE WEEKLY IN THE THIRD WEEK
     Dates: start: 202311

REACTIONS (3)
  - Venoocclusive liver disease [Recovered/Resolved]
  - Septic shock [Recovered/Resolved]
  - Myelosuppression [Recovered/Resolved]

NARRATIVE: CASE EVENT DATE: 20231101
